FAERS Safety Report 23035976 (Version 1)
Quarter: 2023Q4

REPORT INFORMATION
  Report Type: Spontaneous
  Country: US (occurrence: US)
  Receive Date: 20231006
  Receipt Date: 20231006
  Transmission Date: 20240109
  Serious: No
  Sender: FDA-Public Use
  Company Number: US-PADAGIS-2023PAD01414

PATIENT

DRUGS (9)
  1. CYCLOSPORINE [Suspect]
     Active Substance: CYCLOSPORINE
     Indication: Eosinophilic cellulitis
     Dosage: UNK
     Route: 065
  2. DAPSONE [Concomitant]
     Active Substance: DAPSONE
     Indication: Eosinophilic cellulitis
     Dosage: 150 MG, QD
     Route: 065
  3. DAPSONE [Concomitant]
     Active Substance: DAPSONE
     Dosage: 50 MG, QD (DOSE TAPERED)
     Route: 065
  4. DAPSONE [Concomitant]
     Active Substance: DAPSONE
     Dosage: 250 MG, QD
     Route: 065
  5. DAPSONE [Concomitant]
     Active Substance: DAPSONE
     Dosage: 25 MG, QD (MAINTENANCE DOSE)
     Route: 065
  6. DAPSONE [Concomitant]
     Active Substance: DAPSONE
     Dosage: 100 MG, QD
     Route: 065
  7. HYDROXYCHLOROQUINE [Concomitant]
     Active Substance: HYDROXYCHLOROQUINE
     Indication: Eosinophilic cellulitis
     Dosage: UNK
     Route: 065
  8. DOXYCYCLINE [Concomitant]
     Active Substance: DOXYCYCLINE
     Indication: Eosinophilic cellulitis
     Dosage: UNK
     Route: 065
  9. PREDNISONE [Concomitant]
     Active Substance: PREDNISONE
     Indication: Eosinophilic cellulitis
     Dosage: UNK
     Route: 065

REACTIONS (2)
  - Therapy non-responder [Unknown]
  - Product use in unapproved indication [Unknown]
